FAERS Safety Report 7512152-5 (Version None)
Quarter: 2011Q2

REPORT INFORMATION
  Report Type: 
  Country: None (occurrence: None)
  Receive Date: 20110520
  Receipt Date: 20110509
  Transmission Date: 20111010
  Serious: Yes (Hospitalization, Other)
  Sender: FDA-Public Use
  Company Number: DSJ-2011-09157

PATIENT
  Age: 52 Year
  Sex: Male

DRUGS (2)
  1. ATENOLOL/CHLORTHALIDONE (CHLORTALIDONE, ATENOLOL) [Concomitant]
  2. AMLODIPINE BESYLATE AND OLMESARTAN MEDOXOMIL [Suspect]
     Indication: HYPERTENSION
     Dosage: 40/10 MG (1 IN 1 D), PER ORAL
     Route: 048
     Dates: start: 20101101

REACTIONS (3)
  - DIZZINESS [None]
  - DRUG DOSE OMISSION [None]
  - CEREBROVASCULAR ACCIDENT [None]
